FAERS Safety Report 7511181-5 (Version None)
Quarter: 2011Q2

REPORT INFORMATION
  Report Type: 
  Country: None (occurrence: None)
  Receive Date: 20110531
  Receipt Date: 20110518
  Transmission Date: 20111010
  Serious: Yes (Other)
  Sender: FDA-Public Use
  Company Number: PHHY2011JP43052

PATIENT
  Sex: Male

DRUGS (2)
  1. MENEST [Concomitant]
     Dosage: UNK
     Route: 048
  2. COMTAN [Suspect]
     Dosage: UNK
     Route: 048

REACTIONS (1)
  - DISEASE PROGRESSION [None]
